FAERS Safety Report 7375791 (Version 4)
Quarter: 2014Q4

REPORT INFORMATION
  Report Type: Spontaneous
  Country: US (occurrence: US)
  Receive Date: 20100504
  Receipt Date: 20141105
  Transmission Date: 20150529
  Serious: Yes (Hospitalization)
  Sender: FDA-Public Use
  Company Number: US-BAYER-201020522NA

PATIENT
  Age: 48 Year
  Sex: Female
  Weight: 58.96 kg

DRUGS (14)
  1. IBUPROFEN. [Concomitant]
     Active Substance: IBUPROFEN
     Dates: start: 2000
  2. LYRICA [Concomitant]
     Active Substance: PREGABALIN
     Indication: NEUROPATHY PERIPHERAL
  3. ALLEGRA [Concomitant]
     Active Substance: FEXOFENADINE HYDROCHLORIDE
     Dosage: ONE TABLET
  4. YASMIN [Suspect]
     Active Substance: DROSPIRENONE\ETHINYL ESTRADIOL
     Route: 048
     Dates: start: 2002, end: 20080815
  5. BREVOXYL-8 [Concomitant]
     Dosage: UNK
     Dates: start: 20080529
  6. METFORMIN [Concomitant]
     Active Substance: METFORMIN HYDROCHLORIDE
     Indication: POLYCYSTIC OVARIES
  7. BENZACLIN [Concomitant]
     Active Substance: BENZOYL PEROXIDE\CLINDAMYCIN PHOSPHATE
     Dosage: 1-5%
     Dates: start: 20080609
  8. DARVOCET [Concomitant]
     Active Substance: ACETAMINOPHEN\PROPOXYPHENE HYDROCHLORIDE
  9. ZYRTEC [Concomitant]
     Active Substance: CETIRIZINE HYDROCHLORIDE
     Dates: start: 2000
  10. NYSTATIN. [Concomitant]
     Active Substance: NYSTATIN
     Dosage: 500000 U TAB
     Dates: start: 20080627
  11. ZYLET [Concomitant]
     Active Substance: LOTEPREDNOL ETABONATE\TOBRAMYCIN
     Dosage: 0.5-0.3%
     Dates: start: 20080606
  12. NYSTATIN. [Concomitant]
     Active Substance: NYSTATIN
  13. RETIN-A [Concomitant]
     Active Substance: TRETINOIN
     Dosage: 0.025 %, UNK
     Dates: start: 20080529, end: 20081110
  14. GLUCOPHAGE [Concomitant]
     Active Substance: METFORMIN HYDROCHLORIDE
     Dosage: 1500 MG (DAILY DOSE), TID,

REACTIONS (11)
  - Speech disorder [Recovered/Resolved]
  - Dizziness [Recovered/Resolved]
  - Hyperhidrosis [Recovered/Resolved]
  - Eye pain [Recovered/Resolved]
  - Aphasia [Recovered/Resolved]
  - Headache [Recovered/Resolved]
  - Ischaemic stroke [Recovered/Resolved]
  - Facial pain [Recovered/Resolved]
  - Amnesia [Recovered/Resolved]
  - Hypoaesthesia [Recovered/Resolved]
  - Paraesthesia [Recovered/Resolved]

NARRATIVE: CASE EVENT DATE: 200808
